FAERS Safety Report 7377913-4 (Version None)
Quarter: 2011Q1

REPORT INFORMATION
  Report Type: 
  Country: None (occurrence: None)
  Receive Date: 20110328
  Receipt Date: 20110318
  Transmission Date: 20110831
  Serious: Yes (Hospitalization, Other)
  Sender: FDA-Public Use
  Company Number: FR-ACTELION-A-CH2011-44866

PATIENT
  Sex: Female

DRUGS (10)
  1. PREVISCAN [Suspect]
     Dosage: 10 MG, QD
     Dates: end: 20110203
  2. ALDACTONE [Concomitant]
     Dosage: UNK
     Dates: end: 20110207
  3. FLUTICASONE PROPIONATE W/SALMETEROL XINAFOATE [Concomitant]
  4. TRACLEER [Interacting]
     Indication: PULMONARY HYPERTENSION
     Dosage: UNK , UNK
     Route: 048
     Dates: start: 20080901, end: 20110203
  5. PYOSTACINE [Concomitant]
     Dosage: UNK
     Dates: start: 20110106
  6. TRACLEER [Interacting]
     Dosage: 125 MG, UNK
     Route: 048
     Dates: start: 20110228
  7. FLUCONAZOLE [Interacting]
     Dosage: 400 MG, QD
     Dates: start: 20110106
  8. LASIX [Concomitant]
     Dosage: UNK
     Dates: end: 20110207
  9. FLECAINE [Concomitant]
  10. TRIATEC [Concomitant]

REACTIONS (18)
  - JAUNDICE [None]
  - DRUG INTERACTION [None]
  - HYPERNATRAEMIA [None]
  - LIPASE INCREASED [None]
  - ASPARTATE AMINOTRANSFERASE INCREASED [None]
  - ALANINE AMINOTRANSFERASE INCREASED [None]
  - RENAL FAILURE [None]
  - HEPATOMEGALY [None]
  - BLOOD BILIRUBIN INCREASED [None]
  - CYTOLYTIC HEPATITIS [None]
  - CHOLESTASIS [None]
  - BLOOD AMYLASE INCREASED [None]
  - INTERNATIONAL NORMALISED RATIO INCREASED [None]
  - ABDOMINAL PAIN UPPER [None]
  - CHOLELITHIASIS [None]
  - GAMMA-GLUTAMYLTRANSFERASE INCREASED [None]
  - BILIRUBIN CONJUGATED INCREASED [None]
  - BLOOD CREATININE INCREASED [None]
